FAERS Safety Report 19739393 (Version 1)
Quarter: 2021Q3

REPORT INFORMATION
  Report Type: Spontaneous
  Country: US (occurrence: US)
  Receive Date: 20210820
  Receipt Date: 20210820
  Transmission Date: 20211014
  Serious: No
  Sender: FDA-Public Use
  Company Number: None

PATIENT
  Age: 62 Year

DRUGS (2)
  1. ASPIRIN. [Suspect]
     Active Substance: ASPIRIN
     Route: 048
  2. ASPIRIN. [Suspect]
     Active Substance: ASPIRIN
     Route: 048

REACTIONS (4)
  - Product dispensing error [None]
  - Incorrect dose administered [None]
  - Drug monitoring procedure not performed [None]
  - Product prescribing error [None]
